FAERS Safety Report 14621596 (Version 2)
Quarter: 2018Q1

REPORT INFORMATION
  Report Type: Spontaneous
  Country: DE (occurrence: DE)
  Receive Date: 20180310
  Receipt Date: 20180320
  Transmission Date: 20180509
  Serious: Yes (Other)
  Sender: FDA-Public Use
  Company Number: DE-AUROBINDO-AUR-APL-2018-013481

PATIENT
  Age: 72 Year
  Sex: Male

DRUGS (4)
  1. OMEGA 3                            /01333901/ [Concomitant]
     Active Substance: FISH OIL\TOCOPHEROL
     Indication: PRODUCT USED FOR UNKNOWN INDICATION
  2. FINASTERIDE. [Suspect]
     Active Substance: FINASTERIDE
     Indication: ADENOMA BENIGN
     Dosage: UNK
     Dates: start: 201704
  3. TAMSULOSIN [Concomitant]
     Active Substance: TAMSULOSIN
     Indication: PRODUCT USED FOR UNKNOWN INDICATION
  4. AZOPT [Concomitant]
     Active Substance: BRINZOLAMIDE
     Indication: MACULAR DEGENERATION

REACTIONS (3)
  - Testicular swelling [Unknown]
  - Testicular pain [Unknown]
  - Urine odour abnormal [Unknown]
